FAERS Safety Report 7793903-1 (Version None)
Quarter: 2011Q4

REPORT INFORMATION
  Report Type: 
  Country: None (occurrence: None)
  Receive Date: 20111004
  Receipt Date: 20110926
  Transmission Date: 20120403
  Serious: Yes (Hospitalization)
  Sender: FDA-Public Use
  Company Number: US-BIOGENIDEC-2011BI015880

PATIENT
  Age: 58 Year
  Sex: Female

DRUGS (1)
  1. TYSABRI [Suspect]
     Indication: MULTIPLE SCLEROSIS
     Route: 042
     Dates: start: 20101004

REACTIONS (6)
  - PNEUMONIA [None]
  - FATIGUE [None]
  - VISUAL IMPAIRMENT [None]
  - INFLUENZA [None]
  - PRURITUS [None]
  - GAIT DISTURBANCE [None]
